FAERS Safety Report 22071459 (Version 1)
Quarter: 2023Q1

REPORT INFORMATION
  Report Type: Report from Study
  Country: HK (occurrence: HK)
  Receive Date: 20230307
  Receipt Date: 20230307
  Transmission Date: 20230417
  Serious: No
  Sender: FDA-Public Use
  Company Number: HK-KARYOPHARM-2023KPT000900

PATIENT
  Age: 52 Year
  Sex: Male

DRUGS (5)
  1. SELINEXOR [Suspect]
     Active Substance: SELINEXOR
     Indication: Diffuse large B-cell lymphoma
     Dosage: 40 MG, 2X/WEEK
     Route: 065
     Dates: start: 20230105
  2. ZOFRAN [Concomitant]
     Active Substance: ONDANSETRON HYDROCHLORIDE
  3. FEBUXOSTAT [Concomitant]
     Active Substance: FEBUXOSTAT
  4. ENTECAVIR [Concomitant]
     Active Substance: ENTECAVIR
  5. MICAFUNGIN [Concomitant]
     Active Substance: MICAFUNGIN

REACTIONS (1)
  - Nausea [Unknown]
